FAERS Safety Report 11406048 (Version 2)
Quarter: 2016Q2

REPORT INFORMATION
  Report Type: Report from Study
  Country: SI (occurrence: SI)
  Receive Date: 20150821
  Receipt Date: 20160624
  Transmission Date: 20160815
  Serious: Yes (Life-Threatening, Other)
  Sender: FDA-Public Use
  Company Number: SI-AMGEN-SVNSL2015083796

PATIENT
  Age: 65 Year
  Sex: Female

DRUGS (3)
  1. BLINCYTO [Suspect]
     Active Substance: BLINATUMOMAB
     Indication: ACUTE LYMPHOCYTIC LEUKAEMIA RECURRENT
     Dosage: 28 MCG, QD
     Route: 042
     Dates: start: 20150805
  2. METHOTREXATE [Concomitant]
     Active Substance: METHOTREXATE
  3. CYCLOSPORIN A [Concomitant]
     Active Substance: CYCLOSPORINE

REACTIONS (12)
  - Thrombocytopenia [Unknown]
  - Streptococcal sepsis [Unknown]
  - Cerebral haemorrhage [Not Recovered/Not Resolved]
  - Febrile neutropenia [Unknown]
  - Pleural effusion [Unknown]
  - Graft versus host disease in skin [Unknown]
  - Aphasia [Unknown]
  - Transient ischaemic attack [Unknown]
  - Cardiac disorder [Unknown]
  - Cytomegalovirus infection [Unknown]
  - Device related sepsis [Unknown]
  - Mucosal inflammation [Unknown]

NARRATIVE: CASE EVENT DATE: 20150806
